FAERS Safety Report 13078105 (Version 1)
Quarter: 2017Q1

REPORT INFORMATION
  Report Type: Spontaneous
  Country: TW (occurrence: TW)
  Receive Date: 20170102
  Receipt Date: 20170102
  Transmission Date: 20170428
  Serious: Yes (Hospitalization, Other)
  Sender: FDA-Public Use
  Company Number: TW-SUN PHARMACEUTICAL INDUSTRIES LTD-2016RR-130097

PATIENT
  Age: 66 Year
  Sex: Male

DRUGS (4)
  1. EPINEPHRINE. [Concomitant]
     Active Substance: EPINEPHRINE
     Indication: DUODENAL ULCER
     Dosage: UNK
     Route: 065
  2. CEFMETAZOLE [Suspect]
     Active Substance: CEFMETAZOLE
     Indication: PRODUCT USED FOR UNKNOWN INDICATION
     Dosage: 1 G, TID
     Route: 042
  3. INDOMETHACIN. [Suspect]
     Active Substance: INDOMETHACIN
     Indication: ARTHRALGIA
     Dosage: FOR APPROXIMATELY 6 MONTHS
     Route: 065
  4. OMEPRAZOLE. [Suspect]
     Active Substance: OMEPRAZOLE
     Indication: DUODENAL ULCER
     Dosage: 40 MG, BID
     Route: 065

REACTIONS (5)
  - Eosinophilia [Recovered/Resolved]
  - Bacillus bacteraemia [Recovered/Resolved]
  - Drug abuse [Unknown]
  - Chills [Recovered/Resolved]
  - Pyrexia [Recovered/Resolved]
